FAERS Safety Report 7508080-1 (Version None)
Quarter: 2011Q2

REPORT INFORMATION
  Report Type: 
  Country: None (occurrence: None)
  Receive Date: 20110527
  Receipt Date: 20110512
  Transmission Date: 20111010
  Serious: Yes (Hospitalization)
  Sender: FDA-Public Use
  Company Number: US-BAYER-201031623NA

PATIENT
  Age: 35 Year
  Sex: Female
  Weight: 90.703 kg

DRUGS (14)
  1. IBUPROFEN [Concomitant]
     Dosage: UNK
     Dates: start: 20040101, end: 20080101
  2. OXYCODONE HCL [Concomitant]
     Dosage: UNK
     Dates: end: 20070809
  3. MOTRIN [Concomitant]
  4. LYRICA [Concomitant]
     Indication: BACK PAIN
     Dosage: 75 MG, BID
     Route: 048
  5. SOMA [Concomitant]
     Indication: BACK PAIN
     Dosage: 350 MG, BID
     Route: 048
  6. COLACE [Concomitant]
     Indication: CONSTIPATION
     Dosage: 100 MG, BID
     Route: 048
  7. LICON [Concomitant]
     Dosage: UNK
     Dates: end: 20070809
  8. YAZ [Suspect]
     Indication: ACNE
     Route: 048
     Dates: start: 20070520, end: 20070808
  9. YASMIN [Suspect]
     Indication: PRODUCT USED FOR UNKNOWN INDICATION
     Route: 048
     Dates: start: 20070520, end: 20070801
  10. WELLBUTRIN [Concomitant]
     Indication: DEPRESSION
     Dosage: 150 MG, QD
     Route: 048
  11. ZANAFLEX [Concomitant]
  12. PERCOCET-5 [Concomitant]
     Indication: BACK PAIN
     Dosage: UNK UNK, QID
     Route: 048
  13. ZOLOFT [Concomitant]
  14. LIDOCAINE [Concomitant]
     Indication: BACK PAIN
     Dosage: 5 %, UNK
     Route: 062

REACTIONS (2)
  - DEEP VEIN THROMBOSIS [None]
  - PAIN [None]
